FAERS Safety Report 7822360-1 (Version None)
Quarter: 2011Q4

REPORT INFORMATION
  Report Type: 
  Country: None (occurrence: None)
  Receive Date: 20111018
  Receipt Date: 20111003
  Transmission Date: 20120403
  Serious: Yes (Other)
  Sender: FDA-Public Use
  Company Number: IT-WATSON-2011-16426

PATIENT
  Age: 23 Year
  Sex: Male

DRUGS (3)
  1. VALPROATE SODIUM [Suspect]
     Indication: SCHIZOPHRENIA, DISORGANISED TYPE
     Dosage: 500 MG, DAILY
     Route: 065
  2. NICOTINE [Suspect]
     Dosage: 15-20 CIGARETTES DAILY
  3. CLOZAPINE [Suspect]
     Indication: SCHIZOPHRENIA, DISORGANISED TYPE
     Dosage: 900 MG, DAILY

REACTIONS (2)
  - DRUG LEVEL DECREASED [None]
  - DRUG INTERACTION [None]
